FAERS Safety Report 5385068-0 (Version None)
Quarter: 2007Q3

REPORT INFORMATION
  Report Type: 
  Country: None (occurrence: None)
  Receive Date: 20070706
  Receipt Date: 20070706
  Transmission Date: 20080115
  Serious: Yes (Hospitalization)
  Sender: FDA-Public Use
  Company Number: None

PATIENT
  Sex: Female
  Weight: 60.5 kg

DRUGS (7)
  1. MEGACE [Suspect]
     Dosage: 40MG/ML - 20ML DAILY PO
     Route: 048
     Dates: start: 20070416
  2. SYNTHROID [Concomitant]
  3. LOTENSIN [Concomitant]
  4. DEMADEX [Concomitant]
  5. POTASSIUM CHLORIDE [Concomitant]
  6. AVANDIA [Concomitant]
  7. MAGNESIUM OXIDE [Concomitant]

REACTIONS (2)
  - ANAEMIA [None]
  - SYNCOPE [None]
